FAERS Safety Report 8106796-X (Version None)
Quarter: 2012Q1

REPORT INFORMATION
  Report Type: 
  Country: None (occurrence: None)
  Receive Date: 20120202
  Receipt Date: 20120126
  Transmission Date: 20120608
  Serious: No
  Sender: FDA-Public Use
  Company Number: US-PFIZER INC-2012024387

PATIENT

DRUGS (2)
  1. IBUPROFEN [Suspect]
  2. ACETAMINOPHEN [Suspect]

REACTIONS (1)
  - SYNCOPE [None]
